FAERS Safety Report 9114648 (Version 1)
Quarter: 2013Q1

REPORT INFORMATION
  Report Type: Spontaneous
  Country: US (occurrence: None)
  Receive Date: 20130220
  Receipt Date: 20130220
  Transmission Date: 20140127
  Serious: Yes (Other)
  Sender: FDA-Public Use
  Company Number: None

PATIENT
  Age: 37 Year
  Sex: Female

DRUGS (1)
  1. VENLAFAXINE [Suspect]
     Dosage: 150MG  PO  QD?RX WAS FILLED SINCE 9-6-2011
     Route: 048
     Dates: start: 20110906

REACTIONS (1)
  - Withdrawal syndrome [None]
